FAERS Safety Report 4363067-5 (Version None)
Quarter: 2004Q2

REPORT INFORMATION
  Report Type: 
  Country: None (occurrence: None)
  Receive Date: 20040519
  Receipt Date: 20040507
  Transmission Date: 20050107
  Serious: Yes (Hospitalization, Other)
  Sender: FDA-Public Use
  Company Number: 2004027372

PATIENT
  Age: 71 Year
  Sex: Male

DRUGS (7)
  1. ATORVASTATIN(ATORVASTATIN) [Suspect]
     Indication: DYSLIPIDAEMIA
     Dosage: 10 MG (DAILY), ORAL
     Route: 048
     Dates: start: 20021001
  2. ENALAPRIL MALEATE [Concomitant]
  3. AMLODIPINE [Concomitant]
  4. CLOPIDOGREL(CLOPIDOGREL) [Concomitant]
  5. AMIODARONE HCL [Concomitant]
  6. .. [Concomitant]
  7. .. [Concomitant]

REACTIONS (4)
  - BLOOD CREATININE DECREASED [None]
  - PNEUMONIA [None]
  - PULMONARY OEDEMA [None]
  - RENAL CELL CARCINOMA STAGE UNSPECIFIED [None]
